FAERS Safety Report 14316880 (Version 4)
Quarter: 2018Q2

REPORT INFORMATION
  Report Type: Spontaneous
  Country: GB (occurrence: GB)
  Receive Date: 20171222
  Receipt Date: 20180412
  Transmission Date: 20180711
  Serious: Yes (Hospitalization)
  Sender: FDA-Public Use
  Company Number: GB-VELOXIS PHARMACEUTICALS-2037638

PATIENT
  Age: 56 Year
  Sex: Male
  Weight: 109 kg

DRUGS (3)
  1. ENVARSUS XR [Suspect]
     Active Substance: TACROLIMUS
     Indication: PROPHYLAXIS AGAINST TRANSPLANT REJECTION
  2. DIGOXIN. [Suspect]
     Active Substance: DIGOXIN
  3. CLARITHROMYCIN. [Suspect]
     Active Substance: CLARITHROMYCIN
     Route: 048
     Dates: start: 20170717, end: 20170724

REACTIONS (5)
  - Drug level increased [Unknown]
  - Toxicity to various agents [Unknown]
  - Labelled drug-drug interaction medication error [Recovered/Resolved]
  - Malaise [Unknown]
  - Acute kidney injury [Unknown]

NARRATIVE: CASE EVENT DATE: 20170721
